FAERS Safety Report 7300247-0 (Version None)
Quarter: 2011Q1

REPORT INFORMATION
  Report Type: 
  Country: None (occurrence: None)
  Receive Date: 20110217
  Receipt Date: 20110201
  Transmission Date: 20110831
  Serious: No
  Sender: FDA-Public Use
  Company Number: US-BIOGENIDEC-2011BI004873

PATIENT
  Age: 49 Year
  Sex: Female

DRUGS (1)
  1. TYSABRI [Suspect]
     Indication: MULTIPLE SCLEROSIS
     Route: 042
     Dates: start: 20090414

REACTIONS (6)
  - MUSCLE SPASMS [None]
  - VISION BLURRED [None]
  - MULTIPLE SCLEROSIS RELAPSE [None]
  - BACK PAIN [None]
  - FATIGUE [None]
  - DIZZINESS [None]
